FAERS Safety Report 9546500 (Version 1)
Quarter: 2013Q3

REPORT INFORMATION
  Report Type: Spontaneous
  Country: US (occurrence: US)
  Receive Date: 20130923
  Receipt Date: 20130923
  Transmission Date: 20140515
  Serious: No
  Sender: FDA-Public Use
  Company Number: US-ALLERGAN-1310732US

PATIENT
  Age: 44 Year
  Sex: Female

DRUGS (1)
  1. ACUVAIL [Suspect]
     Indication: CONJUNCTIVITIS ALLERGIC
     Dosage: 2 GTT, BID
     Route: 047
     Dates: start: 20130625, end: 20130626

REACTIONS (3)
  - Off label use [Unknown]
  - Eye irritation [Unknown]
  - Ocular hyperaemia [Recovered/Resolved]
